FAERS Safety Report 16694155 (Version 2)
Quarter: 2019Q3

REPORT INFORMATION
  Report Type: Spontaneous
  Country: US (occurrence: US)
  Receive Date: 20190812
  Receipt Date: 20190902
  Transmission Date: 20191004
  Serious: No
  Sender: FDA-Public Use
  Company Number: US-TAKEDA-2019TUS047152

PATIENT
  Sex: Female

DRUGS (2)
  1. COLCRYS [Suspect]
     Active Substance: COLCHICINE
     Indication: RHEUMATOID ARTHRITIS
     Dosage: 0.6 MILLIGRAM, QD
     Route: 048
  2. COLCRYS [Suspect]
     Active Substance: COLCHICINE
     Indication: PALINDROMIC RHEUMATISM
     Dosage: 0.6 MILLIGRAM, BID
     Route: 048

REACTIONS (2)
  - Off label use [Unknown]
  - No adverse event [Unknown]
